FAERS Safety Report 17355959 (Version 1)
Quarter: 2020Q1

REPORT INFORMATION
  Report Type: Spontaneous
  Country: RO (occurrence: RO)
  Receive Date: 20200131
  Receipt Date: 20200131
  Transmission Date: 20200409
  Serious: Yes (Disabling, Other)
  Sender: FDA-Public Use
  Company Number: RO-MYLANLABS-2020M1010955

PATIENT
  Age: 69 Year
  Sex: Male

DRUGS (7)
  1. VECTIBIX [Suspect]
     Active Substance: PANITUMUMAB
     Indication: COLORECTAL CANCER METASTATIC
     Dosage: 6 MILLIGRAM/KILOGRAM, Q2W (6 MILLIGRAM/KILOGRAM, Q2WK)
     Route: 042
     Dates: start: 201712, end: 2018
  2. VECTIBIX [Suspect]
     Active Substance: PANITUMUMAB
     Dosage: 6 MILLIGRAM/KILOGRAM, Q2W (6 MILLIGRAM/KILOGRAM, Q2WK)
     Route: 042
     Dates: start: 2018
  3. IRINOTECAN [Concomitant]
     Active Substance: IRINOTECAN
     Indication: COLORECTAL CANCER METASTATIC
     Dosage: UNK
     Dates: start: 2018
  4. 5 FU [Suspect]
     Active Substance: FLUOROURACIL
     Indication: COLORECTAL CANCER METASTATIC
     Dosage: 1 UNK, Q2WK (STANDARD DOSING)
     Route: 042
     Dates: start: 201712
  5. FOLINIC ACID [Suspect]
     Active Substance: LEUCOVORIN
     Indication: COLORECTAL CANCER METASTATIC
     Dosage: 1 UNK, Q2WK (STANDARD DOSING)
     Route: 042
     Dates: start: 201712
  6. OXALIPLATIN. [Suspect]
     Active Substance: OXALIPLATIN
     Indication: COLORECTAL CANCER METASTATIC
     Dosage: 1UNK, Q2WK (STANDARD DOSING)
     Route: 042
     Dates: start: 201712, end: 2018
  7. DOXYCYCLINE. [Concomitant]
     Active Substance: DOXYCYCLINE
     Indication: PROPHYLAXIS
     Dosage: 200 MILLIGRAM, QD

REACTIONS (4)
  - Neurotoxicity [Not Recovered/Not Resolved]
  - Disease progression [Unknown]
  - Mucosal inflammation [Unknown]
  - Rash [Unknown]

NARRATIVE: CASE EVENT DATE: 2018
